FAERS Safety Report 20795875 (Version 5)
Quarter: 2022Q3

REPORT INFORMATION
  Report Type: Spontaneous
  Country: DE (occurrence: DE)
  Receive Date: 20220506
  Receipt Date: 20220713
  Transmission Date: 20221026
  Serious: Yes (Life-Threatening, Disabling)
  Sender: FDA-Public Use
  Company Number: DE-SANOFI-01085307

PATIENT
  Sex: Female

DRUGS (1)
  1. ENOXAPARIN SODIUM [Suspect]
     Active Substance: ENOXAPARIN SODIUM
     Dosage: UNK UNK, QD, 4000 ONCE A DAY

REACTIONS (5)
  - Injection site haematoma [Unknown]
  - Needle issue [Unknown]
  - Walking aid user [Unknown]
  - Injection site bruising [Unknown]
  - Needle issue [Unknown]
